FAERS Safety Report 6117045-6 (Version None)
Quarter: 2009Q1

REPORT INFORMATION
  Report Type: 
  Country: None (occurrence: None)
  Receive Date: 20090314
  Receipt Date: 20090106
  Transmission Date: 20090719
  Serious: Yes (Other)
  Sender: FDA-Public Use
  Company Number: US-ABBOTT-09P-163-0496031-00

PATIENT
  Sex: Female
  Weight: 72.64 kg

DRUGS (3)
  1. HUMIRA [Suspect]
     Indication: RHEUMATOID ARTHRITIS
     Route: 058
     Dates: start: 20050401
  2. UNKNOWN BLOOD PRESSURE MEDICATION [Concomitant]
     Indication: HYPERTENSION
  3. UNKNOWN DIABETIC MEDICATION [Concomitant]
     Indication: DIABETES MELLITUS

REACTIONS (3)
  - DRUG LEVEL CHANGED [None]
  - MUSCLE SPASMS [None]
  - THROMBOSIS [None]
